FAERS Safety Report 9793097 (Version 4)
Quarter: 2017Q2

REPORT INFORMATION
  Report Type: Report from Study
  Country: JP (occurrence: JP)
  Receive Date: 20140102
  Receipt Date: 20170412
  Transmission Date: 20170830
  Serious: Yes (Other)
  Sender: FDA-Public Use
  Company Number: JP-CELGENEUS-087-50794-13124668

PATIENT
  Age: 68 Year
  Sex: Female
  Weight: 45 kg

DRUGS (17)
  1. VIDAZA [Suspect]
     Active Substance: AZACITIDINE
     Dosage: 70 MILLIGRAM
     Route: 041
     Dates: start: 20110822, end: 20110830
  2. VIDAZA [Suspect]
     Active Substance: AZACITIDINE
     Dosage: 75 MILLIGRAM
     Route: 041
     Dates: start: 20120529, end: 20120601
  3. VIDAZA [Suspect]
     Active Substance: AZACITIDINE
     Dosage: 75 MILLIGRAM
     Route: 041
     Dates: start: 20130311, end: 20130319
  4. VIDAZA [Suspect]
     Active Substance: AZACITIDINE
     Dosage: 70 MILLIGRAM
     Route: 041
     Dates: start: 20120312, end: 20120316
  5. VIDAZA [Suspect]
     Active Substance: AZACITIDINE
     Dosage: 70 MILLIGRAM
     Route: 041
     Dates: start: 20111128, end: 20111202
  6. VIDAZA [Suspect]
     Active Substance: AZACITIDINE
     Dosage: 75 MILLIGRAM
     Route: 041
     Dates: start: 20130115, end: 20130123
  7. PRIMOBOLAN-DEPOT [Concomitant]
     Active Substance: METHENOLONE ENANTHATE
     Indication: PRODUCT USED FOR UNKNOWN INDICATION
     Route: 065
  8. VIDAZA [Suspect]
     Active Substance: AZACITIDINE
     Dosage: 75 MILLIGRAM
     Route: 041
     Dates: start: 20130214, end: 20130222
  9. VIDAZA [Suspect]
     Active Substance: AZACITIDINE
     Indication: MYELODYSPLASTIC SYNDROME
     Dosage: 75 MILLIGRAM/SQ. METER
     Route: 041
     Dates: start: 20110719, end: 20110727
  10. VIDAZA [Suspect]
     Active Substance: AZACITIDINE
     Dosage: 70 MILLIGRAM
     Route: 041
     Dates: start: 20120206, end: 20120210
  11. VIDAZA [Suspect]
     Active Substance: AZACITIDINE
     Dosage: 70 MILLIGRAM
     Route: 041
     Dates: start: 20120409, end: 20120413
  12. VIDAZA [Suspect]
     Active Substance: AZACITIDINE
     Dosage: 75 MILLIGRAM
     Route: 041
     Dates: start: 20121029, end: 20121106
  13. OMEPRAZON [Concomitant]
     Active Substance: OMEPRAZOLE
     Indication: PRODUCT USED FOR UNKNOWN INDICATION
     Route: 065
  14. VIDAZA [Suspect]
     Active Substance: AZACITIDINE
     Dosage: 75 MILLIGRAM
     Route: 041
     Dates: start: 20120625, end: 20120703
  15. VIDAZA [Suspect]
     Active Substance: AZACITIDINE
     Dosage: 75 MILLIGRAM
     Route: 041
     Dates: start: 20120806, end: 20120814
  16. VIDAZA [Suspect]
     Active Substance: AZACITIDINE
     Dosage: 75 MILLIGRAM
     Route: 041
     Dates: start: 20121204, end: 20121212
  17. EXJADE [Suspect]
     Active Substance: DEFERASIROX
     Indication: IRON OVERLOAD
     Dosage: 24.68 MILLIGRAM
     Route: 048

REACTIONS (2)
  - Renal disorder [Not Recovered/Not Resolved]
  - Renal disorder [Recovered/Resolved]

NARRATIVE: CASE EVENT DATE: 20110806
